FAERS Safety Report 12900132 (Version 3)
Quarter: 2018Q1

REPORT INFORMATION
  Report Type: Spontaneous
  Country: US (occurrence: US)
  Receive Date: 20161101
  Receipt Date: 20180315
  Transmission Date: 20180508
  Serious: No
  Sender: FDA-Public Use
  Company Number: US-TAKEDA-2016MPI009386

PATIENT
  Sex: Male
  Weight: 81.63 kg

DRUGS (1)
  1. NINLARO [Suspect]
     Active Substance: IXAZOMIB CITRATE
     Indication: PLASMA CELL MYELOMA
     Dosage: 4 MG, UNK
     Route: 048
     Dates: start: 20160107

REACTIONS (3)
  - Acne [Unknown]
  - Rash erythematous [Unknown]
  - Rash pustular [Not Recovered/Not Resolved]
